FAERS Safety Report 9355465 (Version 1)
Quarter: 2013Q2

REPORT INFORMATION
  Report Type: Spontaneous
  Country: US (occurrence: None)
  Receive Date: 20130618
  Receipt Date: 20130618
  Transmission Date: 20140414
  Serious: Yes (Life-Threatening, Disabling, Other)
  Sender: FDA-Public Use
  Company Number: None

PATIENT
  Sex: Female
  Weight: 79.38 kg

DRUGS (1)
  1. ABILIFY [Suspect]
     Indication: DEPRESSION
     Route: 048
     Dates: start: 19861021, end: 20130610

REACTIONS (6)
  - Confusional state [None]
  - Anxiety [None]
  - Fear [None]
  - Thinking abnormal [None]
  - Disturbance in attention [None]
  - Nightmare [None]
